FAERS Safety Report 4512073-6 (Version None)
Quarter: 2004Q4

REPORT INFORMATION
  Report Type: 
  Country: None (occurrence: None)
  Receive Date: 20041129
  Receipt Date: 20040109
  Transmission Date: 20050328
  Serious: Yes (Death, Hospitalization)
  Sender: FDA-Public Use
  Company Number: MX-ROCHE-355701

PATIENT
  Age: 61 Year
  Sex: Male
  Weight: 70 kg

DRUGS (7)
  1. CAPECITABINE [Suspect]
     Dosage: 1000 MG/M2 BID FOR 2 WEEKS FOLLOWED BY ONE WEEK REST
     Route: 048
     Dates: start: 20031027, end: 20031220
  2. OXALIPLATIN [Suspect]
     Dosage: 130 MG/M2
     Route: 042
     Dates: start: 20031027, end: 20031220
  3. GRANISETRON [Concomitant]
     Dates: start: 20031027, end: 20031208
  4. DEXAMETHASONE [Concomitant]
     Dates: start: 20031027, end: 20031208
  5. METFORMIN HCL [Concomitant]
     Dates: start: 20030915, end: 20031220
  6. CANDESARTAN [Concomitant]
     Dates: start: 20030915, end: 20031220
  7. ATENOLOL [Concomitant]
     Dates: start: 20031118, end: 20031220

REACTIONS (9)
  - ASTHENIA [None]
  - HAEMOGLOBIN DECREASED [None]
  - HYPOVOLAEMIC SHOCK [None]
  - LEUKOPENIA [None]
  - NAUSEA [None]
  - PLATELET COUNT DECREASED [None]
  - THROMBOCYTOPENIA [None]
  - VOMITING [None]
  - WHITE BLOOD CELL COUNT DECREASED [None]
